FAERS Safety Report 10154924 (Version 1)
Quarter: 2014Q2

REPORT INFORMATION
  Report Type: Spontaneous
  Country: US (occurrence: None)
  Receive Date: 20140505
  Receipt Date: 20140505
  Transmission Date: 20141212
  Serious: Yes (Hospitalization)
  Sender: FDA-Public Use
  Company Number: None

PATIENT
  Age: 77 Year
  Sex: Male
  Weight: 95.9 kg

DRUGS (4)
  1. RIVAROXABAN [Suspect]
     Indication: DEEP VEIN THROMBOSIS
     Route: 048
     Dates: start: 20131230, end: 20140428
  2. RIVAROXABAN [Suspect]
     Indication: PULMONARY EMBOLISM
     Route: 048
     Dates: start: 20131230, end: 20140428
  3. GALANTAMINE [Concomitant]
  4. TAMSULOSIN [Concomitant]

REACTIONS (2)
  - Deep vein thrombosis [None]
  - Pulmonary embolism [None]
